FAERS Safety Report 8308663-5 (Version None)
Quarter: 2012Q2

REPORT INFORMATION
  Report Type: 
  Country: None (occurrence: None)
  Receive Date: 20120424
  Receipt Date: 20120419
  Transmission Date: 20120825
  Serious: No
  Sender: FDA-Public Use
  Company Number: US-PFIZER INC-2012099887

PATIENT
  Sex: Male

DRUGS (2)
  1. PRISTIQ [Suspect]
     Dosage: 25 MG, UNK
  2. PRISTIQ [Suspect]
     Dosage: 50 MG, UNK

REACTIONS (3)
  - DRUG ADMINISTRATION ERROR [None]
  - HEADACHE [None]
  - ANXIETY [None]
